FAERS Safety Report 6892593-X (Version None)
Quarter: 2010Q3

REPORT INFORMATION
  Report Type: 
  Country: None (occurrence: None)
  Receive Date: 20100731
  Receipt Date: 20080708
  Transmission Date: 20110219
  Serious: No
  Sender: FDA-Public Use
  Company Number: US-PFIZER INC-2008058114

PATIENT
  Sex: Female

DRUGS (1)
  1. NEURONTIN [Suspect]
     Indication: NERVE INJURY
     Route: 048

REACTIONS (2)
  - DRUG INEFFECTIVE [None]
  - VISUAL IMPAIRMENT [None]
